FAERS Safety Report 24018323 (Version 1)
Quarter: 2024Q2

REPORT INFORMATION
  Report Type: Report from Study
  Country: AU (occurrence: AU)
  Receive Date: 20240627
  Receipt Date: 20240627
  Transmission Date: 20240716
  Serious: Yes (Other)
  Sender: FDA-Public Use
  Company Number: AU-ABBVIE-5785523

PATIENT
  Age: 67 Year
  Sex: Female

DRUGS (2)
  1. HUMIRA [Suspect]
     Active Substance: ADALIMUMAB
     Indication: Rheumatoid arthritis
     Route: 058
  2. ENDEP [Concomitant]
     Active Substance: AMITRIPTYLINE HYDROCHLORIDE
     Indication: Product used for unknown indication

REACTIONS (11)
  - Diverticulum [Not Recovered/Not Resolved]
  - Injection site bruising [Recovered/Resolved]
  - Sciatica [Unknown]
  - Burning sensation [Unknown]
  - Neuralgia [Unknown]
  - Gastrointestinal disorder [Not Recovered/Not Resolved]
  - Fatigue [Unknown]
  - Pain [Unknown]
  - Therapeutic response shortened [Unknown]
  - Large intestine polyp [Unknown]
  - Gastritis [Unknown]

NARRATIVE: CASE EVENT DATE: 20231001
